FAERS Safety Report 8811715 (Version 13)
Quarter: 2013Q4

REPORT INFORMATION
  Report Type: Report from Study
  Country: CA (occurrence: CA)
  Receive Date: 20120927
  Receipt Date: 20131218
  Transmission Date: 20140711
  Serious: Yes (Death, Hospitalization, Other)
  Sender: FDA-Public Use
  Company Number: PHHY2010CA09980

PATIENT
  Age: 60 Year
  Sex: Male

DRUGS (13)
  1. SANDOSTATIN LAR [Suspect]
     Indication: CARCINOID TUMOUR
     Dosage: 40 MG, EVERY 4 WEEKS
     Route: 030
     Dates: start: 20000820
  2. SANDOSTATIN LAR [Suspect]
     Dosage: 40 MG, QMO
     Route: 030
     Dates: start: 20110518
  3. SANDOSTATIN LAR [Suspect]
     Dosage: 30 MG, UNK
     Route: 030
     Dates: start: 20110601
  4. SANDOSTATIN LAR [Suspect]
     Dosage: 40 MG EVERY 4 WEEKS
     Route: 030
  5. SANDOSTATIN LAR [Suspect]
     Dosage: 40 MG, ONCE A MONTH
     Route: 030
     Dates: end: 20131210
  6. CANDESARTAN [Suspect]
     Dosage: 16 MG, UNK
  7. CHEMOTHERAPEUTICS NOS [Concomitant]
     Dosage: UNK UKN, UNK
  8. METAMUCIL [Concomitant]
     Dosage: UNK UKN, UNK
  9. ASPARTAME [Concomitant]
     Dosage: UNK UKN, UNK
  10. HYDROCHLOROTHIAZID [Concomitant]
     Dosage: UNK UKN, UNK
  11. INDAPAMIDE [Concomitant]
     Dosage: UNK UKN, UNK
  12. ALDACTONE [Concomitant]
     Dosage: UNK UKN, UNK
  13. ZOFRAN [Concomitant]
     Dosage: UNK UKN, UNK

REACTIONS (34)
  - Death [Fatal]
  - Hip fracture [Unknown]
  - Hypotension [Unknown]
  - Blood potassium decreased [Unknown]
  - Infection [Unknown]
  - Abdominal neoplasm [Unknown]
  - Hepatic failure [Unknown]
  - Hepatic enzyme increased [Unknown]
  - Fall [Unknown]
  - Renal impairment [Unknown]
  - Malignant neoplasm progression [Unknown]
  - Oedema peripheral [Recovering/Resolving]
  - Joint swelling [Unknown]
  - Localised oedema [Unknown]
  - Pain in extremity [Unknown]
  - Weight gain poor [Unknown]
  - Feeling abnormal [Unknown]
  - Weight decreased [Unknown]
  - Haematochezia [Unknown]
  - Hypertension [Unknown]
  - Flushing [Unknown]
  - Heart rate irregular [Unknown]
  - Heart rate increased [Unknown]
  - Dyspnoea [Unknown]
  - Abdominal pain [Not Recovered/Not Resolved]
  - Dizziness [Unknown]
  - Nausea [Unknown]
  - Decreased appetite [Recovering/Resolving]
  - Vomiting [Unknown]
  - Abdominal discomfort [Unknown]
  - Diarrhoea [Unknown]
  - Abdominal distension [Unknown]
  - Therapeutic response decreased [Unknown]
  - Constipation [Unknown]
